FAERS Safety Report 10362164 (Version 2)
Quarter: 2014Q3

REPORT INFORMATION
  Report Type: Report from Study
  Country: US (occurrence: US)
  Receive Date: 20140805
  Receipt Date: 20140805
  Transmission Date: 20150326
  Serious: Yes (Death)
  Sender: FDA-Public Use
  Company Number: US-ROCHE-1413665

PATIENT
  Sex: Male
  Weight: 20.9 kg

DRUGS (8)
  1. DESMOPRESSIN [Concomitant]
     Active Substance: DESMOPRESSIN
     Route: 048
  2. BISACODYL. [Concomitant]
     Active Substance: BISACODYL
     Dosage: PRN
     Route: 054
  3. PREVACID [Concomitant]
     Active Substance: LANSOPRAZOLE
     Route: 065
  4. CORTEF [Concomitant]
     Active Substance: HYDROCORTISONE
     Route: 048
  5. HYDROCORTISONE SODIUM SUCCINATE [Concomitant]
     Active Substance: HYDROCORTISONE SODIUM SUCCINATE
     Dosage: PRN
     Route: 030
  6. PEG 3350 + ELECTROLYTES [Concomitant]
     Route: 065
  7. NUTROPIN AQ [Suspect]
     Active Substance: SOMATROPIN
     Indication: HYPOPITUITARISM
     Dosage: Q HS
     Route: 058
  8. LEVOTHYROXINE [Concomitant]
     Active Substance: LEVOTHYROXINE
     Route: 048

REACTIONS (7)
  - Catheter site haemorrhage [Unknown]
  - Death [Fatal]
  - Pyrexia [Unknown]
  - Sleep disorder [Unknown]
  - Constipation [Unknown]
  - Crying [Unknown]
  - Abnormal behaviour [Unknown]
